FAERS Safety Report 5675822-X (Version None)
Quarter: 2008Q2

REPORT INFORMATION
  Report Type: 
  Country: None (occurrence: None)
  Receive Date: 20080312
  Receipt Date: 20071031
  Transmission Date: 20081010
  Serious: Yes (Other)
  Sender: FDA-Public Use
  Company Number: CHPA2007US11596

PATIENT
  Sex: Female

DRUGS (1)
  1. EXCEDRIN MIGRAINE (NCH)(CAFFEINE CITRATE, ACETYLSALICYLIC ACID, ACETAM [Suspect]

REACTIONS (1)
  - HEPATOCELLULAR INJURY [None]
